FAERS Safety Report 16994167 (Version 2)
Quarter: 2019Q4

REPORT INFORMATION
  Report Type: Report from Study
  Country: GB (occurrence: GB)
  Receive Date: 20191105
  Receipt Date: 20191227
  Transmission Date: 20200122
  Serious: Yes (Other)
  Sender: FDA-Public Use
  Company Number: NVSC2019GB023165

PATIENT
  Age: 72 Year
  Sex: Male

DRUGS (1)
  1. SANDOSTATIN LAR DEPOT [Suspect]
     Active Substance: OCTREOTIDE ACETATE
     Indication: NEUROENDOCRINE TUMOUR
     Dosage: 20 MG, QMO
     Route: 030
     Dates: start: 201904

REACTIONS (3)
  - Abdominal pain [Unknown]
  - Nephrolithiasis [Unknown]
  - Back pain [Unknown]

NARRATIVE: CASE EVENT DATE: 20191023
